FAERS Safety Report 21352094 (Version 1)
Quarter: 2022Q3

REPORT INFORMATION
  Report Type: Spontaneous
  Country: CZ (occurrence: CZ)
  Receive Date: 20220920
  Receipt Date: 20220920
  Transmission Date: 20221027
  Serious: Yes (Other)
  Sender: FDA-Public Use
  Company Number: CZ-SUN PHARMACEUTICAL INDUSTRIES LTD-2022R1-354956

PATIENT
  Age: 71 Year
  Sex: Female

DRUGS (1)
  1. SUNITINIB [Suspect]
     Active Substance: SUNITINIB
     Indication: Product used for unknown indication
     Dosage: 37.5 MILLIGRAM, DAILY
     Route: 065
     Dates: start: 202003, end: 202009

REACTIONS (4)
  - Disease progression [Unknown]
  - Condition aggravated [Unknown]
  - Thrombocytopenia [Unknown]
  - Headache [Unknown]
